FAERS Safety Report 9686970 (Version 1)
Quarter: 2013Q4

REPORT INFORMATION
  Report Type: Spontaneous
  Country: CN (occurrence: CN)
  Receive Date: 20131113
  Receipt Date: 20131113
  Transmission Date: 20140711
  Serious: Yes (Other)
  Sender: FDA-Public Use
  Company Number: CN-INCYTE CORPORATION-2013IN002632

PATIENT
  Age: 72 Year
  Sex: Male

DRUGS (2)
  1. JAKAVI [Suspect]
     Indication: MYELOFIBROSIS
     Dosage: 40 MG, DAILY
     Route: 065
  2. JAKAVI [Suspect]
     Dosage: 10 MG, BID
     Route: 065

REACTIONS (1)
  - Hepatitis B [Unknown]
